FAERS Safety Report 6255640-4 (Version None)
Quarter: 2009Q3

REPORT INFORMATION
  Report Type: 
  Country: None (occurrence: None)
  Receive Date: 20090701
  Receipt Date: 20090622
  Transmission Date: 20100115
  Serious: Yes (Other)
  Sender: FDA-Public Use
  Company Number: 1000006989

PATIENT
  Age: 53 Year
  Sex: Female

DRUGS (10)
  1. THYROID TAB [Suspect]
     Indication: HYPOTHYROIDISM
     Dosage: 300 MG (300 MG, 1 IN 1 D), ORAL
     Route: 048
     Dates: start: 20061101
  2. MEDROL [Concomitant]
  3. LISINOPRIL [Concomitant]
  4. LOVASTATIN [Concomitant]
  5. NORVASC [Concomitant]
  6. TOPROL (TABLETS) [Concomitant]
  7. LOPID [Concomitant]
  8. LANTUS [Concomitant]
  9. CORTEF [Concomitant]
  10. HYDROCORTISONE [Concomitant]

REACTIONS (3)
  - CHEST DISCOMFORT [None]
  - DRUG INEFFECTIVE [None]
  - DYSPNOEA [None]
